FAERS Safety Report 9732570 (Version 1)
Quarter: 2013Q4

REPORT INFORMATION
  Report Type: Spontaneous
  Country: US (occurrence: US)
  Receive Date: 20131205
  Receipt Date: 20131205
  Transmission Date: 20140711
  Serious: Yes (Death, Hospitalization, Other)
  Sender: FDA-Public Use
  Company Number: US-TEVA-448999USA

PATIENT
  Age: 59 Year
  Sex: Female

DRUGS (2)
  1. FENTANYL [Suspect]
  2. FENTANYL PATCH [Suspect]

REACTIONS (8)
  - Cardiac arrest [Fatal]
  - Acidosis [Fatal]
  - Blood creatinine increased [Fatal]
  - Hypotension [Fatal]
  - Hypothermia [Fatal]
  - Renal failure [Fatal]
  - Coma [Fatal]
  - Respiratory depression [Fatal]
